FAERS Safety Report 4436801-3 (Version None)
Quarter: 2004Q3

REPORT INFORMATION
  Report Type: 
  Country: None (occurrence: None)
  Receive Date: 20040830
  Receipt Date: 20040723
  Transmission Date: 20050211
  Serious: Yes (Disabling)
  Sender: FDA-Public Use
  Company Number: 200412423JP

PATIENT
  Age: 55 Year
  Sex: Female
  Weight: 55 kg

DRUGS (9)
  1. LANTUS [Suspect]
     Indication: DIABETES MELLITUS
     Dosage: DOSE UNIT: UNITS
     Route: 058
     Dates: start: 20040419, end: 20040726
  2. OPTIPEN (INSULIN PUMP) [Suspect]
  3. NOVORAPID [Suspect]
     Indication: DIABETES MELLITUS INSULIN-DEPENDENT
     Dosage: DOSE: 8-4-4; DOSE UNIT: UNITS
     Route: 042
     Dates: start: 20040427, end: 20040723
  4. HUMALOG [Suspect]
     Indication: DIABETES MELLITUS INSULIN-DEPENDENT
     Dosage: DOSE: 8-4-4; DOSE UNIT: UNITS
     Route: 058
     Dates: start: 20040723, end: 20040726
  5. MEVALOTIN [Suspect]
     Indication: HYPERLIPIDAEMIA
     Route: 048
     Dates: start: 20000426, end: 20040713
  6. KINEDAK [Suspect]
     Indication: DIABETIC NEUROPATHY
     Route: 048
     Dates: start: 20040413, end: 20040713
  7. CYANOCOBALAMIN [Suspect]
     Indication: DIABETIC NEUROPATHY
     Route: 048
     Dates: start: 20000329, end: 20040723
  8. LENDORM [Suspect]
     Indication: INSOMNIA
     Route: 048
     Dates: start: 19970716, end: 20040729
  9. ALOSENN [Suspect]
     Indication: CONSTIPATION
     Route: 048
     Dates: start: 19970716, end: 20040729

REACTIONS (3)
  - HAEMANGIOMA OF LIVER [None]
  - HEPATIC CYST [None]
  - HEPATIC FUNCTION ABNORMAL [None]
